FAERS Safety Report 8617822-3 (Version None)
Quarter: 2012Q3

REPORT INFORMATION
  Report Type: 
  Country: None (occurrence: None)
  Receive Date: 20120824
  Receipt Date: 20120226
  Transmission Date: 20120928
  Serious: No
  Sender: FDA-Public Use
  Company Number: US-ASTRAZENECA-2012SE13345

PATIENT
  Age: 71 Year
  Sex: Female
  Weight: 47.2 kg

DRUGS (1)
  1. SYMBICORT [Suspect]
     Indication: RESPIRATORY DISORDER
     Dosage: 80/4.5 MCG TWO, TWO TIMES A DAY
     Route: 055

REACTIONS (2)
  - DYSPNOEA [None]
  - OFF LABEL USE [None]
